FAERS Safety Report 7251952-6 (Version None)
Quarter: 2011Q1

REPORT INFORMATION
  Report Type: 
  Country: None (occurrence: None)
  Receive Date: 20110128
  Receipt Date: 20100106
  Transmission Date: 20110831
  Serious: No
  Sender: FDA-Public Use
  Company Number: US-ABBOTT-09P-163-0615823-00

PATIENT
  Sex: Male
  Weight: 53.118 kg

DRUGS (2)
  1. HUMIRA [Suspect]
     Indication: CROHN'S DISEASE
     Route: 058
  2. IMURAN [Concomitant]
     Indication: CROHN'S DISEASE
     Route: 048

REACTIONS (5)
  - COUGH [None]
  - DYSPHONIA [None]
  - SINUSITIS [None]
  - TONSILLITIS [None]
  - ADENOIDITIS [None]
